FAERS Safety Report 7233349-8 (Version None)
Quarter: 2011Q1

REPORT INFORMATION
  Report Type: 
  Country: None (occurrence: None)
  Receive Date: 20110119
  Receipt Date: 20110107
  Transmission Date: 20110831
  Serious: Yes (Other)
  Sender: FDA-Public Use
  Company Number: PHHY2011GB01349

PATIENT
  Age: 45 Year
  Sex: Female
  Weight: 50 kg

DRUGS (6)
  1. DIAZEPAM [Concomitant]
     Dosage: UNK
     Dates: start: 20101222, end: 20101229
  2. DICLOFENAC SODIUM [Concomitant]
     Dosage: UNK
     Dates: start: 20101220
  3. TRAMADOL HCL [Concomitant]
     Dosage: UNK
     Dates: start: 20100917
  4. CO-CODAMOL [Suspect]
     Dosage: UNK
     Dates: start: 20101229
  5. ALGESAL [Concomitant]
     Dosage: UNK
     Dates: start: 20101223
  6. ZOPICLONE [Concomitant]
     Dosage: UNK
     Dates: start: 20101229

REACTIONS (1)
  - CIRCULATORY COLLAPSE [None]
